FAERS Safety Report 9574800 (Version 3)
Quarter: 2013Q4

REPORT INFORMATION
  Report Type: Spontaneous
  Country: US (occurrence: US)
  Receive Date: 20131001
  Receipt Date: 20131101
  Transmission Date: 20140711
  Serious: Yes (Hospitalization)
  Sender: FDA-Public Use
  Company Number: US-BAYER-2013-118672

PATIENT
  Age: 53 Year
  Sex: Male

DRUGS (1)
  1. MAGNEVIST [Suspect]
     Indication: CARDIAC IMAGING PROCEDURE
     Dosage: 20 ML, ONCE
     Route: 042
     Dates: start: 20130919, end: 20130919

REACTIONS (1)
  - Anaphylactic reaction [None]
